FAERS Safety Report 7368786-4 (Version None)
Quarter: 2011Q1

REPORT INFORMATION
  Report Type: 
  Country: None (occurrence: None)
  Receive Date: 20110310
  Receipt Date: 20110223
  Transmission Date: 20110831
  Serious: Yes (Hospitalization, Other)
  Sender: FDA-Public Use
  Company Number: 2011016567

PATIENT
  Age: 67 Year
  Sex: Male
  Weight: 94 kg

DRUGS (69)
  1. ALPRAZOLAM [Concomitant]
  2. CYCLOBENZAPRINE [Concomitant]
  3. GABAPENTIN [Concomitant]
  4. DEXAMETHASONE (DEXAMETHASONE) [Concomitant]
  5. PHENAZOPYRIDINE (PHENAZOPYRIDINE) [Concomitant]
  6. DIPHENHYDRAMINE HCL [Concomitant]
  7. ALLOPURINOL [Concomitant]
  8. LINEZOLID [Concomitant]
  9. MORPHINE [Concomitant]
  10. DALTEPARIN SODIUM [Suspect]
     Indication: DEEP VEIN THROMBOSIS
     Dosage: 15000 IU, DAILY, SUBCUTANEOUS, 12500 IU, SUBCUTANEOUS, 15000 IU,  SUBCUTANEOUS
     Route: 058
     Dates: start: 20110120
  11. DALTEPARIN SODIUM [Suspect]
     Indication: DEEP VEIN THROMBOSIS
     Dosage: 15000 IU, DAILY, SUBCUTANEOUS, 12500 IU, SUBCUTANEOUS, 15000 IU,  SUBCUTANEOUS
     Route: 058
     Dates: start: 20101230, end: 20110119
  12. DALTEPARIN SODIUM [Suspect]
     Indication: DEEP VEIN THROMBOSIS
     Dosage: 15000 IU, DAILY, SUBCUTANEOUS, 12500 IU, SUBCUTANEOUS, 15000 IU,  SUBCUTANEOUS
     Route: 058
     Dates: start: 20110202
  13. SENOKOT [Concomitant]
  14. AMLODIPINE [Concomitant]
  15. TAMSULOSIN HCL [Concomitant]
  16. PIPERACILLIN AND TAZOBACTAM [Concomitant]
  17. GUAIFENESIN [Concomitant]
  18. VENLAFAXINE [Concomitant]
  19. RED BLOOD CELLS, CONCENTRATED (RED BLOOD CELLS, CONCENTRATED) [Concomitant]
  20. SODIUM BICARBONATE IN PLASTIC CONTAINER [Concomitant]
  21. SODIUM CHLORIDE 0.9% [Concomitant]
  22. MYLANTA (ALUMINIUM HYDROXIDE GEL, DRIED, MAGNESIUM HYDROXIDE, SIMETICO [Concomitant]
  23. SENOKOT [Concomitant]
  24. DIPYRIDAMOLE [Concomitant]
  25. PROCHLORPERAZINE MALEATE [Concomitant]
  26. CICLOPIROX (CICLOPIROX) [Concomitant]
  27. ALOXI [Concomitant]
  28. TAMSULOSIN HCL [Concomitant]
  29. METFORMIN HCL [Concomitant]
  30. PAROXETINE HCL [Concomitant]
  31. RED BLOOD CELLS (RED BLOOD CELLS) [Concomitant]
  32. DIPHENHYDRAMINE HCL [Concomitant]
  33. MONTELUKAST SODIUM [Concomitant]
  34. LIDODERM [Concomitant]
  35. ONDANSETRON [Concomitant]
  36. MONTELUKAST SODIUM [Concomitant]
  37. LISINOPRIL [Concomitant]
  38. NAPROXEN [Concomitant]
  39. ANZEMET [Concomitant]
  40. NEUPOGEN [Concomitant]
  41. ALBUTEROL [Concomitant]
  42. PERCOCET [Concomitant]
  43. EMEND [Concomitant]
  44. OXYCODONE HCL [Concomitant]
  45. HEPARIN [Concomitant]
  46. METOPROLOL (METOPROLOL) [Concomitant]
  47. LORAZEPAM [Concomitant]
  48. CARBOPLATIN [Concomitant]
  49. GEMCITABINE [Concomitant]
  50. FENTANYL [Concomitant]
  51. OMEPRAZOLE [Concomitant]
  52. POTASSIUM CHLORIDE [Concomitant]
  53. LOPERAMIDE [Concomitant]
  54. FUROSEMIDE [Concomitant]
  55. LEVOFLOXACIN (LEVAQUIN) [Concomitant]
  56. DUTASTERIDE (DUTASTERIDE) [Concomitant]
  57. LANSOPRAZOLE [Concomitant]
  58. POLYETHYLENE GLYCOL [Concomitant]
  59. LORATADINE [Concomitant]
  60. MANNITOL [Concomitant]
  61. MAGNESIUM OXIDE (MAGNESIUM OXIDE) [Concomitant]
  62. FEXOFENADINE HCL [Concomitant]
  63. CELECOXIB [Concomitant]
  64. SODIUM POLYSTYRENE SULFONATE (SODIUM POLYSTYRENE SULFONATE) [Concomitant]
  65. KAOPECTATE (KAOLIN, PECTIN) [Concomitant]
  66. ACETAMINOPHEN [Concomitant]
  67. ZOFRAN [Concomitant]
  68. ACETAMINOPHEN/BUTALBITAL (BUTALBITAL, PARACETAMOL) [Concomitant]
  69. MULTIVITAMINS (ASCORBIC ACID, ERGOCALCIFEROL, FOLIC ACID, NICOTINAMIDE [Concomitant]

REACTIONS (19)
  - THROMBOCYTOPENIA [None]
  - CONDITION AGGRAVATED [None]
  - LYMPHATIC OBSTRUCTION [None]
  - HYPOPHOSPHATAEMIA [None]
  - SEPSIS [None]
  - LYMPHADENOPATHY [None]
  - HIATUS HERNIA [None]
  - PELVIC PAIN [None]
  - HYPOMAGNESAEMIA [None]
  - PLEURAL EFFUSION [None]
  - HYPOKALAEMIA [None]
  - HYDRONEPHROSIS [None]
  - LYMPHOEDEMA [None]
  - LUMBOSACRAL PLEXUS LESION [None]
  - RENAL FAILURE ACUTE [None]
  - CELLULITIS [None]
  - ANAEMIA OF CHRONIC DISEASE [None]
  - URINARY TRACT INFECTION STAPHYLOCOCCAL [None]
  - NEPHROGENIC ANAEMIA [None]
